FAERS Safety Report 11689264 (Version 2)
Quarter: 2015Q4

REPORT INFORMATION
  Report Type: Report from Study
  Country: DE (occurrence: DE)
  Receive Date: 20151102
  Receipt Date: 20151116
  Transmission Date: 20160304
  Serious: Yes (Hospitalization)
  Sender: FDA-Public Use
  Company Number: DE-TEVA-603641GER

PATIENT
  Age: 66 Year
  Sex: Female
  Weight: 49 kg

DRUGS (6)
  1. MYOCET [Suspect]
     Active Substance: DOXORUBICIN
     Indication: BREAST CANCER FEMALE
     Dosage: LAST DOSE PRIOR TO SAE: 01-OCT-2015
     Route: 042
     Dates: start: 20150618, end: 20151008
  2. LEVOFLOXACIN. [Concomitant]
     Active Substance: LEVOFLOXACIN
     Dosage: 500 MILLIGRAM DAILY;
     Dates: start: 20151007, end: 20151016
  3. PERJETA [Suspect]
     Active Substance: PERTUZUMAB
     Indication: BREAST CANCER FEMALE
     Dosage: LAST DOSE PRIOR TO SAE: 01-OCT-2015
     Route: 042
     Dates: start: 20150618, end: 20151008
  4. PACLITAXEL. [Suspect]
     Active Substance: PACLITAXEL
     Dosage: LAST DOSE PRIOR TO SAE: 01-OCT-2015
     Route: 042
     Dates: start: 20151001, end: 20151008
  5. TRASTUZUMAB [Suspect]
     Active Substance: TRASTUZUMAB
     Indication: BREAST CANCER FEMALE
     Dosage: LAST DOSE PRIOR TO SAE: 01-OCT-2015
     Route: 042
     Dates: start: 20150618, end: 20151008
  6. PACLITAXEL. [Suspect]
     Active Substance: PACLITAXEL
     Indication: BREAST CANCER FEMALE
     Route: 042
     Dates: start: 20150618, end: 20150930

REACTIONS (1)
  - C-reactive protein increased [Recovered/Resolved]

NARRATIVE: CASE EVENT DATE: 20151001
